FAERS Safety Report 11544278 (Version 1)
Quarter: 2015Q3

REPORT INFORMATION
  Report Type: Spontaneous
  Country: US (occurrence: None)
  Receive Date: 20150923
  Receipt Date: 20150923
  Transmission Date: 20151125
  Serious: Yes (Other)
  Sender: FDA-Public Use
  Company Number: None

PATIENT
  Age: 73 Year
  Sex: Male

DRUGS (1)
  1. EFFIENT [Suspect]
     Active Substance: PRASUGREL HYDROCHLORIDE
     Route: 048
     Dates: start: 201311, end: 20150208

REACTIONS (3)
  - Skin discolouration [None]
  - Thrombotic thrombocytopenic purpura [None]
  - Peripheral swelling [None]

NARRATIVE: CASE EVENT DATE: 20150208
